FAERS Safety Report 7642517-2 (Version None)
Quarter: 2011Q3

REPORT INFORMATION
  Report Type: 
  Country: None (occurrence: None)
  Receive Date: 20110728
  Receipt Date: 20110713
  Transmission Date: 20111222
  Serious: Yes (Death)
  Sender: FDA-Public Use
  Company Number: SA-TYCO HEALTHCARE/MALLINCKRODT-T201101410

PATIENT
  Age: 62 Year
  Sex: Male

DRUGS (6)
  1. ACETAMINOPHEN [Concomitant]
  2. TEMAZEPAM [Suspect]
  3. ALCOHOL [Concomitant]
  4. DIHYDROCODEINE BITARTRATE INJ [Suspect]
  5. OXAZEPAM [Concomitant]
  6. DIAZEPAM [Concomitant]

REACTIONS (1)
  - OVERDOSE [None]
